FAERS Safety Report 16363477 (Version 1)
Quarter: 2019Q2

REPORT INFORMATION
  Report Type: Spontaneous
  Country: ES (occurrence: ES)
  Receive Date: 20190528
  Receipt Date: 20190528
  Transmission Date: 20190711
  Serious: Yes (Life-Threatening, Hospitalization)
  Sender: FDA-Public Use
  Company Number: ES-ASTRAZENECA-2019SE77615

PATIENT
  Age: 16 Year
  Sex: Male
  Weight: 50 kg

DRUGS (7)
  1. ECULIZUMAB [Concomitant]
     Active Substance: ECULIZUMAB
  2. QUETIAPINE FUMARATE. [Suspect]
     Active Substance: QUETIAPINE FUMARATE
     Indication: SUICIDE ATTEMPT
     Dosage: 59 TABLETS OF QUETIPINE 300 MG PROLONGED RELEASE. TOTAL INTAKE DOSE: 7.7 G OF QUETIAPINE (354 MG/...
     Route: 048
  3. MYCOPHENOLIC ACID. [Concomitant]
     Active Substance: MYCOPHENOLIC ACID
  4. FUROSEMIDE. [Concomitant]
     Active Substance: FUROSEMIDE
  5. CAPTOPRIL. [Concomitant]
     Active Substance: CAPTOPRIL
  6. AMOXICILLIN. [Concomitant]
     Active Substance: AMOXICILLIN
  7. VITAMINE D [Concomitant]
     Active Substance: CHOLECALCIFEROL

REACTIONS (5)
  - Suicide attempt [Unknown]
  - Dyspnoea [Unknown]
  - General physical health deterioration [Unknown]
  - Coma [Unknown]
  - Mobility decreased [Unknown]
